FAERS Safety Report 6843446-4 (Version None)
Quarter: 2010Q3

REPORT INFORMATION
  Report Type: 
  Country: None (occurrence: None)
  Receive Date: 20100712
  Receipt Date: 20100628
  Transmission Date: 20110219
  Serious: Yes (Death, Hospitalization)
  Sender: FDA-Public Use
  Company Number: GB-ACCORD-005590

PATIENT
  Age: 70 Year
  Sex: Female

DRUGS (24)
  1. SIMVASTATIN [Suspect]
     Indication: HYPERLIPIDAEMIA
  2. AMITRIPTYLINE HYDROCHLORIDE [Suspect]
     Indication: DEPRESSION
  3. ASPIRIN [Suspect]
     Indication: HYPERTENSION
  4. CIPROFLOXACIN [Suspect]
     Indication: BACTERAEMIA
  5. CITALOPRAM HYDROBROMIDE [Suspect]
     Indication: DEPRESSION
  6. ENALAPRIL MALEATE [Suspect]
     Indication: HYPERTENSION
  7. FUROSEMIDE [Suspect]
     Indication: HYPERTENSION
  8. AMPICILLIN [Suspect]
     Indication: BACTERAEMIA
  9. CEFTRIAXONE [Suspect]
     Indication: PNEUMONIA
  10. GLYBURIDE [Suspect]
     Indication: TYPE 2 DIABETES MELLITUS
     Dosage: ORAL
     Route: 048
  11. HYDROCORTONE [Suspect]
     Indication: TOXIC EPIDERMAL NECROLYSIS
     Dosage: INTRAVENOUS (NOT OTHERWISE SPECIFIED)
     Route: 042
  12. IMMUNE GLOBULIN (HUMAN) [Suspect]
     Indication: PRODUCT USED FOR UNKNOWN INDICATION
  13. LEVOFLOXACIN [Suspect]
     Indication: BACTERAEMIA
     Dosage: INTRAVENOUS (NOT OTHERWISE SPECIFIED)
     Route: 042
  14. METFORMIN HCL [Suspect]
     Indication: TYPE 2 DIABETES MELLITUS
     Dosage: ORAL
     Route: 048
  15. OMEPRAZOLE [Suspect]
     Indication: PRODUCT USED FOR UNKNOWN INDICATION
  16. PIPERACILLIN [Suspect]
     Indication: BACTERAEMIA
  17. AMIKACIN [Suspect]
     Indication: BACTERAEMIA
  18. TAZOBACTAM [Suspect]
     Indication: PRODUCT USED FOR UNKNOWN INDICATION
  19. THEOPHYLLINE [Suspect]
     Indication: BRONCHITIS CHRONIC
  20. VANCOMYCIN [Suspect]
     Indication: BACTERAEMIA
  21. VERAPAMIL [Suspect]
     Indication: HYPERTENSION
  22. DEXTROSE [Concomitant]
  23. LATANOPROST [Concomitant]
  24. MAGNESIUM SULFATE [Concomitant]

REACTIONS (14)
  - ACUTE RESPIRATORY DISTRESS SYNDROME [None]
  - BACTERIAL INFECTION [None]
  - BLOOD DISORDER [None]
  - ENTEROBACTER INFECTION [None]
  - ENTEROCOCCAL INFECTION [None]
  - HAEMODYNAMIC INSTABILITY [None]
  - HAEMORRHAGE INTRACRANIAL [None]
  - HYPOGLYCAEMIA [None]
  - HYPOMAGNESAEMIA [None]
  - PNEUMONIA KLEBSIELLA [None]
  - PROTEUS INFECTION [None]
  - PSEUDOMONAS INFECTION [None]
  - THROMBOCYTOPENIA [None]
  - TOXIC EPIDERMAL NECROLYSIS [None]
